FAERS Safety Report 26161904 (Version 1)
Quarter: 2025Q4

REPORT INFORMATION
  Report Type: Spontaneous
  Country: US (occurrence: US)
  Receive Date: 20251216
  Receipt Date: 20251216
  Transmission Date: 20260118
  Serious: No
  Sender: BIONPHARMA INC.
  Company Number: US-Bion-015335

PATIENT
  Sex: Male

DRUGS (1)
  1. OXCARBAZEPINE [Suspect]
     Active Substance: OXCARBAZEPINE
     Indication: Product used for unknown indication
     Dosage: 300 MG PER 5 ML
     Route: 048

REACTIONS (5)
  - Liquid product physical issue [Unknown]
  - Product quality issue [Unknown]
  - Product use issue [Unknown]
  - Poor quality product administered [Unknown]
  - No adverse event [Unknown]
